FAERS Safety Report 7578342-0 (Version None)
Quarter: 2011Q2

REPORT INFORMATION
  Report Type: 
  Country: None (occurrence: None)
  Receive Date: 20110628
  Receipt Date: 20110621
  Transmission Date: 20111010
  Serious: Yes (Death, Hospitalization)
  Sender: FDA-Public Use
  Company Number: US-CELGENEUS-163-20785-11050078

PATIENT
  Sex: Male

DRUGS (2)
  1. THALOMID [Suspect]
     Indication: MYELOFIBROSIS
     Dosage: 100 MILLIGRAM
     Route: 048
     Dates: start: 20110301
  2. THALOMID [Suspect]
     Dosage: 50 MILLIGRAM
     Route: 048
     Dates: start: 20110401

REACTIONS (6)
  - DEATH [None]
  - PROCTALGIA [None]
  - ABDOMINAL PAIN UPPER [None]
  - ANAEMIA [None]
  - MYELOFIBROSIS [None]
  - PORTAL HYPERTENSION [None]
